FAERS Safety Report 23861581 (Version 1)
Quarter: 2024Q2

REPORT INFORMATION
  Report Type: Report from Study
  Country: US (occurrence: US)
  Receive Date: 20240516
  Receipt Date: 20240516
  Transmission Date: 20240716
  Serious: Yes (Hospitalization, Other)
  Sender: FDA-Public Use
  Company Number: US-ABBVIE-5759634

PATIENT
  Sex: Female

DRUGS (1)
  1. SKYRIZI [Suspect]
     Active Substance: RISANKIZUMAB-RZAA
     Indication: Crohn^s disease
     Route: 058
     Dates: start: 20240105

REACTIONS (4)
  - Gastrointestinal surgery [Unknown]
  - Postoperative adhesion [Recovering/Resolving]
  - Intestinal obstruction [Recovering/Resolving]
  - Intestinal stenosis [Recovering/Resolving]

NARRATIVE: CASE EVENT DATE: 20240101
